FAERS Safety Report 6473430-4 (Version None)
Quarter: 2009Q4

REPORT INFORMATION
  Report Type: 
  Country: None (occurrence: None)
  Receive Date: 20091204
  Receipt Date: 20081028
  Transmission Date: 20100525
  Serious: Yes (Hospitalization, Disabling, Other)
  Sender: FDA-Public Use
  Company Number: US-ELI_LILLY_AND_COMPANY-US200810006630

PATIENT
  Age: 84 Year

DRUGS (14)
  1. FORTEO [Suspect]
     Indication: BACK PAIN
     Dosage: UNK, UNK
     Dates: start: 20070208
  2. METOPROLOL [Concomitant]
  3. CALCIUM                                 /N/A/ [Concomitant]
  4. VITAMIN D [Concomitant]
  5. PREDNISONE [Concomitant]
     Indication: RHEUMATOID ARTHRITIS
     Dosage: 7.5 UU/ML, UNK
  6. SIMVASTATIN [Concomitant]
  7. OPHTHALMOLOGICALS [Concomitant]
     Indication: DRY EYE
     Route: 047
  8. PROZAC [Concomitant]
     Dosage: 10 MG, UNK
  9. LISINOPRIL [Concomitant]
  10. ERYTHROMYCIN [Concomitant]
     Indication: EYE DISORDER
     Route: 047
  11. METAMUCIL [Concomitant]
  12. METHOTREXATE [Concomitant]
     Dosage: 10 MG, WEEKLY (1/W)
  13. METHOTREXATE [Concomitant]
     Dosage: 20 MG, WEEKLY (1/W)
  14. IMODIUM [Concomitant]
     Indication: IRRITABLE BOWEL SYNDROME

REACTIONS (6)
  - BLINDNESS UNILATERAL [None]
  - CORNEAL PERFORATION [None]
  - FAECES DISCOLOURED [None]
  - HAEMOGLOBIN DECREASED [None]
  - LIMB INJURY [None]
  - RECTAL HAEMORRHAGE [None]
